FAERS Safety Report 22653098 (Version 1)
Quarter: 2023Q2

REPORT INFORMATION
  Report Type: Spontaneous
  Country: BR (occurrence: BR)
  Receive Date: 20230629
  Receipt Date: 20230629
  Transmission Date: 20230722
  Serious: Yes (Other)
  Sender: FDA-Public Use
  Company Number: BR-002147023-NVSC2023BR145913

PATIENT
  Sex: Female
  Weight: 60 kg

DRUGS (4)
  1. AMLODIPINE [Suspect]
     Active Substance: AMLODIPINE BESYLATE
     Indication: Hypertension
     Dosage: UNK, QD
     Route: 048
  2. ENALAPRIL [Concomitant]
     Active Substance: ENALAPRIL
     Indication: Hypertension
     Dosage: UNK, QD (START MANY YEARS AGO (BEFORE THE DRUG  FORASEQ))
     Route: 048
  3. BUDESONIDE\FORMOTEROL FUMARATE [Concomitant]
     Active Substance: BUDESONIDE\FORMOTEROL FUMARATE
     Indication: Bronchitis
     Dosage: UNK, QD (12/400MCG) (STARTED 10 YEARS AGO AND STOP 2 MONTHS AGO)
  4. ALENIA [Concomitant]
     Indication: Bronchitis
     Dosage: UNK, QD (START 2 MONTHS AGO)

REACTIONS (1)
  - Diabetes mellitus [Unknown]
